FAERS Safety Report 4830050-2 (Version None)
Quarter: 2005Q4

REPORT INFORMATION
  Report Type: 
  Country: None (occurrence: None)
  Receive Date: 20051115
  Receipt Date: 20051115
  Transmission Date: 20060501
  Serious: Yes (Other)
  Sender: FDA-Public Use
  Company Number: None

PATIENT
  Age: 8 Month
  Sex: Male

DRUGS (4)
  1. SYNAGIS [Suspect]
     Dosage: IM
     Route: 030
     Dates: start: 20051006
  2. PEDIAVAX [Concomitant]
  3. HIB [Concomitant]
  4. PREVAX [Concomitant]

REACTIONS (2)
  - LOCAL SWELLING [None]
  - OEDEMA PERIPHERAL [None]
